FAERS Safety Report 7745721-8 (Version None)
Quarter: 2011Q3

REPORT INFORMATION
  Report Type: 
  Country: None (occurrence: None)
  Receive Date: 20110907
  Receipt Date: 20110819
  Transmission Date: 20111222
  Serious: Yes (Other)
  Sender: FDA-Public Use
  Company Number: THQ2011A05398

PATIENT
  Age: 33 Year
  Sex: Male

DRUGS (2)
  1. ACTRAPHANE (INSULIN HUMAN, INSULIN HUMAN INJECTION, ISOPHANE) [Concomitant]
  2. ACTOS [Suspect]

REACTIONS (1)
  - DIALYSIS [None]
